FAERS Safety Report 17134266 (Version 1)
Quarter: 2019Q4

REPORT INFORMATION
  Report Type: Spontaneous
  Country: US (occurrence: US)
  Receive Date: 20191210
  Receipt Date: 20191210
  Transmission Date: 20200122
  Serious: Yes (Other)
  Sender: FDA-Public Use
  Company Number: US-TORRENT-00009541

PATIENT
  Sex: Female
  Weight: 87 kg

DRUGS (2)
  1. LOSARTAN 100MG [Suspect]
     Active Substance: LOSARTAN
     Indication: HYPERTENSION
     Route: 048
     Dates: start: 2017
  2. LOSARTAN 50MG [Suspect]
     Active Substance: LOSARTAN
     Indication: HYPERTENSION
     Route: 048
     Dates: start: 201902, end: 2019

REACTIONS (9)
  - Headache [Recovering/Resolving]
  - Brain neoplasm [Recovering/Resolving]
  - Malaise [Recovering/Resolving]
  - Vomiting [Recovering/Resolving]
  - Brain operation [Unknown]
  - Weight decreased [Recovering/Resolving]
  - Spinal operation [Unknown]
  - Muscle disorder [Recovering/Resolving]
  - Discomfort [Recovering/Resolving]

NARRATIVE: CASE EVENT DATE: 201901
